FAERS Safety Report 5189407-5 (Version None)
Quarter: 2006Q4

REPORT INFORMATION
  Report Type: 
  Country: None (occurrence: None)
  Receive Date: 20061221
  Receipt Date: 20061213
  Transmission Date: 20070319
  Serious: Yes (Other)
  Sender: FDA-Public Use
  Company Number: US-MERCK-0612USA02552

PATIENT
  Age: 59 Year
  Sex: Male

DRUGS (2)
  1. PROPECIA [Suspect]
     Indication: ALOPECIA
     Route: 048
     Dates: start: 19990101
  2. LIPITOR [Concomitant]
     Route: 065

REACTIONS (3)
  - ARTHROPATHY [None]
  - LIBIDO DECREASED [None]
  - SEMEN VOLUME DECREASED [None]
